FAERS Safety Report 13263954 (Version 1)
Quarter: 2017Q1

REPORT INFORMATION
  Report Type: Spontaneous
  Country: US (occurrence: US)
  Receive Date: 20170222
  Receipt Date: 20170222
  Transmission Date: 20170428
  Serious: Yes (Hospitalization)
  Sender: FDA-Public Use
  Company Number: None

PATIENT
  Age: 56 Year
  Sex: Male

DRUGS (1)
  1. ENOXAPARIN 40MG/0.4ML ACTAVIS US [Suspect]
     Active Substance: ENOXAPARIN
     Indication: COLON CANCER
     Route: 058
     Dates: start: 20170216

REACTIONS (1)
  - Dehydration [None]

NARRATIVE: CASE EVENT DATE: 20170221
